FAERS Safety Report 11994492 (Version 2)
Quarter: 2016Q1

REPORT INFORMATION
  Report Type: Spontaneous
  Country: ES (occurrence: ES)
  Receive Date: 20160203
  Receipt Date: 20160205
  Transmission Date: 20160526
  Serious: Yes (Other)
  Sender: FDA-Public Use
  Company Number: PHHY2015ES168800

PATIENT
  Age: 52 Year
  Sex: Female

DRUGS (3)
  1. TACROLIMUS. [Suspect]
     Active Substance: TACROLIMUS
     Indication: IMMUNOSUPPRESSION
     Route: 065
     Dates: start: 200812, end: 200901
  2. MYCOPHENOLATE [Suspect]
     Active Substance: MYCOPHENOLIC ACID
     Indication: IMMUNOSUPPRESSION
     Route: 065
     Dates: start: 200812, end: 200906
  3. RADANIL [Suspect]
     Active Substance: BENZNIDAZOLE
     Indication: AMERICAN TRYPANOSOMIASIS
     Route: 065

REACTIONS (1)
  - Neutropenia [Recovered/Resolved]
